FAERS Safety Report 21707025 (Version 2)
Quarter: 2022Q4

REPORT INFORMATION
  Report Type: Other
  Country: CN (occurrence: None)
  Receive Date: 20221209
  Receipt Date: 20221228
  Transmission Date: 20230113
  Serious: Yes (Hospitalization, Other)
  Sender: FDA-Public Use
  Company Number: CN-ROCHE-3235658

PATIENT
  Age: 20 Year
  Sex: Male

DRUGS (19)
  1. GANCICLOVIR [Suspect]
     Active Substance: GANCICLOVIR
     Indication: Cytomegalovirus infection
     Route: 042
     Dates: start: 20190729, end: 20190917
  2. GANCICLOVIR [Suspect]
     Active Substance: GANCICLOVIR
     Indication: Cytomegalovirus chorioretinitis
     Dosage: INFUSED INTO THE VITREOUS CAVITY OF BOTH EYES 6 TIMES
     Route: 031
     Dates: start: 20200730, end: 20200921
  3. GANCICLOVIR [Suspect]
     Active Substance: GANCICLOVIR
     Dosage: (2.5 MG/0.1 ML)INJECTED IN THE VITREOUS CAVITY
     Route: 031
     Dates: start: 20200806
  4. MYCOPHENOLATE MOFETIL [Suspect]
     Active Substance: MYCOPHENOLATE MOFETIL
     Indication: Prophylaxis against graft versus host disease
     Route: 065
  5. IDARUBICIN [Suspect]
     Active Substance: IDARUBICIN
     Indication: Acute myeloid leukaemia
     Dosage: DAY1-DAY3
     Route: 065
     Dates: start: 20190210
  6. CYTARABINE [Suspect]
     Active Substance: CYTARABINE
     Indication: Acute myeloid leukaemia
     Dosage: DAY1-DAY7
     Route: 065
     Dates: start: 20190210
  7. CYTARABINE [Suspect]
     Active Substance: CYTARABINE
     Dosage: 2.0 G/M2 D1-5
     Route: 065
     Dates: start: 20190319
  8. CYTARABINE [Suspect]
     Active Substance: CYTARABINE
     Dosage: 1.5 G/M2, DAY3-DAY5
     Route: 065
     Dates: start: 20190420
  9. FLUDARABINE [Suspect]
     Active Substance: FLUDARABINE PHOSPHATE
     Indication: Acute myeloid leukaemia
     Dosage: DAY1-DAY5
     Route: 065
     Dates: start: 20190319
  10. FLUDARABINE [Suspect]
     Active Substance: FLUDARABINE PHOSPHATE
     Indication: Cord blood transplant therapy
     Dosage: D6 TO D3
     Route: 065
     Dates: start: 20190605
  11. GRANULOCYTE COLONY-STIMULATING FACTOR NOS [Suspect]
     Active Substance: GRANULOCYTE COLONY-STIMULATING FACTOR NOS
     Indication: Acute myeloid leukaemia
     Route: 065
     Dates: start: 20190319
  12. DECITABINE [Suspect]
     Active Substance: DECITABINE
     Indication: Acute myeloid leukaemia
     Dosage: DAY1-DAY5
     Route: 065
     Dates: start: 20190420
  13. BUSULFAN [Suspect]
     Active Substance: BUSULFAN
     Indication: Cord blood transplant therapy
     Dosage: D5 TO D2
     Route: 065
     Dates: start: 20190605
  14. CYCLOPHOSPHAMIDE [Suspect]
     Active Substance: CYCLOPHOSPHAMIDE
     Indication: Cord blood transplant therapy
     Dosage: D2 TO D0
     Route: 065
     Dates: start: 20190605
  15. CARMUSTINE [Suspect]
     Active Substance: CARMUSTINE
     Indication: Cord blood transplant therapy
     Dosage: DAY 6
     Route: 065
     Dates: start: 20190605
  16. CYCLOSPORINE [Suspect]
     Active Substance: CYCLOSPORINE
     Indication: Prophylaxis against graft versus host disease
     Route: 065
     Dates: start: 201906
  17. RUXOLITINIB [Suspect]
     Active Substance: RUXOLITINIB
     Indication: Prophylaxis against graft versus host disease
     Route: 065
     Dates: start: 2019
  18. METHOTREXATE [Suspect]
     Active Substance: METHOTREXATE
     Indication: Prophylaxis against graft versus host disease
     Route: 065
     Dates: start: 2019
  19. ACYCLOVIR [Concomitant]
     Active Substance: ACYCLOVIR
     Indication: Antiviral prophylaxis
     Route: 065
     Dates: start: 201906

REACTIONS (5)
  - Cytomegalovirus chorioretinitis [Recovered/Resolved]
  - Granulocytes abnormal [Recovered/Resolved]
  - Cytomegalovirus infection [Recovered/Resolved]
  - Drug ineffective [Unknown]
  - Off label use [Unknown]

NARRATIVE: CASE EVENT DATE: 20190712
